FAERS Safety Report 4296759-7 (Version None)
Quarter: 2004Q1

REPORT INFORMATION
  Report Type: 
  Country: None (occurrence: None)
  Receive Date: 20040126
  Receipt Date: 20030910
  Transmission Date: 20041129
  Serious: No
  Sender: FDA-Public Use
  Company Number: USA030946769

PATIENT
  Age: 7 Year
  Sex: Male

DRUGS (4)
  1. STRATTERA [Suspect]
     Dosage: 18 MG/DAY
     Dates: start: 20030801
  2. SINGULAIR [Concomitant]
  3. MULTI-VITAMIN [Concomitant]
  4. ZYRTEC [Concomitant]

REACTIONS (4)
  - EYE DISORDER [None]
  - INSOMNIA [None]
  - TOOTH DISCOLOURATION [None]
  - VOMITING [None]
